FAERS Safety Report 18412698 (Version 1)
Quarter: 2020Q4

REPORT INFORMATION
  Report Type: Spontaneous
  Country: US (occurrence: US)
  Receive Date: 20201021
  Receipt Date: 20201021
  Transmission Date: 20210114
  Serious: No
  Sender: FDA-Public Use
  Company Number: US-PFIZER INC-2020407071

PATIENT
  Sex: Male

DRUGS (1)
  1. INLYTA [Suspect]
     Active Substance: AXITINIB
     Dosage: UNK, 2X/DAY (ONE DOSE IN THE MORNING AND ONE DOSE IN THE EVENING)

REACTIONS (4)
  - Extra dose administered [Unknown]
  - Gait disturbance [Unknown]
  - Rash [Unknown]
  - Dry skin [Unknown]
